FAERS Safety Report 17057348 (Version 1)
Quarter: 2019Q4

REPORT INFORMATION
  Report Type: Report from Study
  Country: BR (occurrence: BR)
  Receive Date: 20191121
  Receipt Date: 20191121
  Transmission Date: 20200122
  Serious: Yes (Disabling, Other)
  Sender: FDA-Public Use
  Company Number: NVSC2019BR036780

PATIENT
  Age: 76 Year
  Sex: Male

DRUGS (1)
  1. EXELON PATCH [Suspect]
     Active Substance: RIVASTIGMINE
     Indication: PRODUCT USED FOR UNKNOWN INDICATION
     Dosage: 4.6 MG, QD PATCH 5 (CM2)
     Route: 065
     Dates: start: 201905

REACTIONS (4)
  - Fibula fracture [Recovered/Resolved]
  - Parkinson^s disease [Not Recovered/Not Resolved]
  - Feeling abnormal [Not Recovered/Not Resolved]
  - Lack of spontaneous speech [Not Recovered/Not Resolved]

NARRATIVE: CASE EVENT DATE: 20190516
